FAERS Safety Report 9362026 (Version 1)
Quarter: 2013Q2

REPORT INFORMATION
  Report Type: Spontaneous
  Country: US (occurrence: US)
  Receive Date: 20130621
  Receipt Date: 20130621
  Transmission Date: 20140414
  Serious: Yes (Other)
  Sender: FDA-Public Use
  Company Number: CHPA2013US010058

PATIENT
  Age: 70 Year
  Sex: Female

DRUGS (2)
  1. EXCEDRIN EXTRA STRENGTH [Suspect]
     Dosage: 2 DF, QD
     Route: 048
     Dates: start: 1963
  2. PRAVASTATIN [Concomitant]
     Indication: BLOOD CHOLESTEROL
     Dosage: UNK, UNK

REACTIONS (5)
  - Thyroid cancer [Unknown]
  - Cataract [Unknown]
  - Feeling of relaxation [Unknown]
  - Energy increased [Unknown]
  - Incorrect drug administration duration [Unknown]
